FAERS Safety Report 5368690-7 (Version None)
Quarter: 2007Q2

REPORT INFORMATION
  Report Type: 
  Country: None (occurrence: None)
  Receive Date: 20070625
  Receipt Date: 20070328
  Transmission Date: 20071010
  Serious: No
  Sender: FDA-Public Use
  Company Number: US-BRISTOL-MYERS SQUIBB COMPANY-13729397

PATIENT
  Age: 38 Year
  Sex: Female
  Weight: 113 kg

DRUGS (5)
  1. ORENCIA [Suspect]
     Route: 042
  2. SINGULAIR [Concomitant]
  3. TOPROL-XL [Concomitant]
  4. NEXIUM [Concomitant]
  5. METHOTREXATE [Concomitant]

REACTIONS (1)
  - FATIGUE [None]
